FAERS Safety Report 10567183 (Version 2)
Quarter: 2014Q4

REPORT INFORMATION
  Report Type: Spontaneous
  Country: RU (occurrence: RU)
  Receive Date: 20141105
  Receipt Date: 20141117
  Transmission Date: 20150529
  Serious: Yes (Other)
  Sender: FDA-Public Use
  Company Number: RU-009507513-1411RUS000156

PATIENT
  Age: 30 Year
  Sex: Female

DRUGS (1)
  1. IMPLANON [Suspect]
     Active Substance: ETONOGESTREL
     Dosage: UNK
     Route: 059
     Dates: start: 20141004, end: 20141030

REACTIONS (5)
  - Surgery [Recovered/Resolved]
  - Implant site hypersensitivity [Recovered/Resolved]
  - Device difficult to use [Recovered/Resolved]
  - Implant site haematoma [Recovered/Resolved]
  - Breast feeding [Unknown]

NARRATIVE: CASE EVENT DATE: 201410
